FAERS Safety Report 8803850 (Version 2)
Quarter: 2013Q1

REPORT INFORMATION
  Report Type: Spontaneous
  Country: BR (occurrence: BR)
  Receive Date: 20120924
  Receipt Date: 20130225
  Transmission Date: 20140127
  Serious: Yes (Other)
  Sender: FDA-Public Use
  Company Number: PHHY2012BR082284

PATIENT
  Sex: Female
  Weight: 50 kg

DRUGS (3)
  1. RASILEZ [Suspect]
     Indication: HYPERTENSION
     Dosage: 1 DF (300MG), PER DAY
     Route: 048
     Dates: start: 201208
  2. RASILEZ [Suspect]
     Dosage: 1 DF, DAILY (300 MG)
     Route: 048
     Dates: start: 201211
  3. ANCORON [Concomitant]
     Indication: ARRHYTHMIA
     Dosage: 1 DF, DAILY
     Route: 048

REACTIONS (1)
  - Arrhythmia [Recovered/Resolved]
